FAERS Safety Report 8111638-2 (Version None)
Quarter: 2012Q1

REPORT INFORMATION
  Report Type: 
  Country: None (occurrence: None)
  Receive Date: 20120202
  Receipt Date: 20120202
  Transmission Date: 20120608
  Serious: Yes (Hospitalization)
  Sender: FDA-Public Use
  Company Number: None

PATIENT
  Sex: Female
  Weight: 87.3 kg

DRUGS (5)
  1. VORINOSTAT 100MG MERCK [Suspect]
     Dosage: 300MG DAILY ORAL
     Route: 048
     Dates: start: 20120102
  2. VORINOSTAT 100MG MERCK [Suspect]
     Dosage: 300MG DAILY ORAL
     Route: 048
     Dates: start: 20111214, end: 20111230
  3. OMEPRAZOLE [Concomitant]
  4. CAPECITABINE [Suspect]
     Indication: PANCREATIC CARCINOMA
     Dosage: 1000MG EVERY 12 HOURS ORAL
     Route: 048
     Dates: start: 20111214, end: 20111227
  5. MOTRIN [Concomitant]

REACTIONS (3)
  - NAUSEA [None]
  - VOMITING [None]
  - DEHYDRATION [None]
